FAERS Safety Report 15680604 (Version 3)
Quarter: 2018Q4

REPORT INFORMATION
  Report Type: Spontaneous
  Country: US (occurrence: US)
  Receive Date: 20181203
  Receipt Date: 20181220
  Transmission Date: 20190205
  Serious: Yes (Hospitalization)
  Sender: FDA-Public Use
  Company Number: US-ASTRAZENECA-2018SF57055

PATIENT
  Age: 21 Year
  Sex: Female
  Weight: 104.3 kg

DRUGS (8)
  1. DUONEB [Concomitant]
     Active Substance: ALBUTEROL SULFATE\IPRATROPIUM BROMIDE
  2. FASENRA [Suspect]
     Active Substance: BENRALIZUMAB
     Indication: ASTHMA
     Dosage: 30 MG, EVERY 3 MONTHS, THEN EVERY OTHER MONTH THEREAFTER
     Route: 058
     Dates: start: 20180205, end: 20181115
  3. ALBUTEROL. [Concomitant]
     Active Substance: ALBUTEROL
     Dosage: 2.5/3ML 2 PUFFS
  4. NASONEX [Concomitant]
     Active Substance: MOMETASONE FUROATE
  5. SINGULAIR [Concomitant]
     Active Substance: MONTELUKAST SODIUM
  6. TRILLOGY [Concomitant]
     Dosage: 100/62.5/25MCG
  7. PEPCID [Concomitant]
     Active Substance: FAMOTIDINE
  8. CLARITIN [Concomitant]
     Active Substance: LORATADINE

REACTIONS (11)
  - Hepatic enzyme increased [Unknown]
  - Cholelithiasis [Unknown]
  - Off label use [Unknown]
  - Drug ineffective [Unknown]
  - Cough [Unknown]
  - Asthma [Unknown]
  - Dyspnoea [Unknown]
  - Eosinophil count increased [Unknown]
  - Chest discomfort [Unknown]
  - Product use issue [Unknown]
  - Wheezing [Unknown]

NARRATIVE: CASE EVENT DATE: 20180205
